FAERS Safety Report 26086719 (Version 1)
Quarter: 2025Q4

REPORT INFORMATION
  Report Type: Spontaneous
  Country: CN (occurrence: CN)
  Receive Date: 20251125
  Receipt Date: 20251125
  Transmission Date: 20260117
  Serious: Yes (Other)
  Sender: JOHNSON AND JOHNSON
  Company Number: CN-JNJFOC-20251164618

PATIENT
  Age: 68 Year
  Sex: Female
  Weight: 72 kg

DRUGS (4)
  1. RISPERDAL [Suspect]
     Active Substance: RISPERIDONE
     Indication: Schizophrenia
     Route: 048
     Dates: start: 20241001, end: 20251112
  2. RISPERDAL [Suspect]
     Active Substance: RISPERIDONE
     Route: 048
  3. OLANZAPINE [Suspect]
     Active Substance: OLANZAPINE
     Indication: Schizophrenia
     Route: 048
     Dates: start: 20151001, end: 20251112
  4. OLANZAPINE [Suspect]
     Active Substance: OLANZAPINE
     Route: 048

REACTIONS (4)
  - Weight increased [Unknown]
  - Increased appetite [Unknown]
  - Decreased activity [Unknown]
  - Asthenia [Unknown]

NARRATIVE: CASE EVENT DATE: 20251112
